FAERS Safety Report 5965093-9 (Version None)
Quarter: 2008Q4

REPORT INFORMATION
  Report Type: 
  Country: None (occurrence: None)
  Receive Date: 20081125
  Receipt Date: 20081119
  Transmission Date: 20090506
  Serious: Yes (Other)
  Sender: FDA-Public Use
  Company Number: US-ASTRAZENECA-2008UW25966

PATIENT
  Sex: Female
  Weight: 74.8 kg

DRUGS (1)
  1. TAMOXIFEN [Suspect]
     Indication: BREAST CANCER FEMALE
     Route: 048
     Dates: start: 19940101, end: 19950101

REACTIONS (3)
  - CONFUSIONAL STATE [None]
  - DIABETES MELLITUS [None]
  - HYPERHIDROSIS [None]
